FAERS Safety Report 9438770 (Version 1)
Quarter: 2013Q3

REPORT INFORMATION
  Report Type: Spontaneous
  Country: PH (occurrence: PH)
  Receive Date: 20130802
  Receipt Date: 20130802
  Transmission Date: 20140515
  Serious: Yes (Hospitalization)
  Sender: FDA-Public Use
  Company Number: PH-MERCK-1308PHL000220

PATIENT
  Sex: Female

DRUGS (1)
  1. JANUVIA [Suspect]
     Dosage: 1 (100 MG) TABLET, QD
     Route: 048
     Dates: end: 20130731

REACTIONS (2)
  - Urinary tract infection [Unknown]
  - Thyroid disorder [Unknown]
